FAERS Safety Report 8538681-3 (Version None)
Quarter: 2012Q3

REPORT INFORMATION
  Report Type: 
  Country: None (occurrence: None)
  Receive Date: 20120726
  Receipt Date: 20120723
  Transmission Date: 20120928
  Serious: No
  Sender: FDA-Public Use
  Company Number: US-BAYER-2012-074302

PATIENT
  Age: 27 Year
  Sex: Female

DRUGS (1)
  1. MIRENA [Suspect]
     Indication: CONTRACEPTION
     Dosage: 20 MCG/24HR, CONT
     Route: 015
     Dates: start: 20120713

REACTIONS (4)
  - POLLAKIURIA [None]
  - MEDICAL DEVICE COMPLICATION [None]
  - METRORRHAGIA [None]
  - MENSTRUATION IRREGULAR [None]
